FAERS Safety Report 6442016-X (Version None)
Quarter: 2009Q4

REPORT INFORMATION
  Report Type: 
  Country: None (occurrence: None)
  Receive Date: 20091110
  Receipt Date: 20090916
  Transmission Date: 20100525
  Serious: No
  Sender: FDA-Public Use
  Company Number: 1000008903

PATIENT
  Age: 72 Year
  Sex: Female

DRUGS (12)
  1. SAVELLA [Suspect]
     Indication: FIBROMYALGIA
     Dosage: 12.5 MG 912.5 MG, 1 IN 1 D), ORAL; 25 MG 912.5 MG, 2 IN 1 D), ORAL; 50 MG (25 MG, 2 IN 1 D), ORAL
     Route: 048
     Dates: start: 20090912, end: 20090912
  2. SAVELLA [Suspect]
     Indication: FIBROMYALGIA
     Dosage: 12.5 MG 912.5 MG, 1 IN 1 D), ORAL; 25 MG 912.5 MG, 2 IN 1 D), ORAL; 50 MG (25 MG, 2 IN 1 D), ORAL
     Route: 048
     Dates: start: 20090913, end: 20090914
  3. SAVELLA [Suspect]
     Indication: FIBROMYALGIA
     Dosage: 12.5 MG 912.5 MG, 1 IN 1 D), ORAL; 25 MG 912.5 MG, 2 IN 1 D), ORAL; 50 MG (25 MG, 2 IN 1 D), ORAL
     Route: 048
     Dates: start: 20090915
  4. VICODIN [Concomitant]
  5. NEURONTIN [Concomitant]
  6. TENORMIN [Concomitant]
  7. DIOVAN [Concomitant]
  8. VITAMIN D [Concomitant]
  9. CALCIUM [Concomitant]
  10. GLUCOSAMINE [Concomitant]
  11. CHONDROITIN [Concomitant]
  12. LIPITOR [Concomitant]

REACTIONS (3)
  - ERYTHEMA [None]
  - HEADACHE [None]
  - HOT FLUSH [None]
